FAERS Safety Report 4464120-8 (Version None)
Quarter: 2004Q4

REPORT INFORMATION
  Report Type: 
  Country: None (occurrence: None)
  Receive Date: 20041001
  Receipt Date: 20040920
  Transmission Date: 20050328
  Serious: Yes (Hospitalization)
  Sender: FDA-Public Use
  Company Number: BE-JNJFOC-20040906331

PATIENT
  Age: 70 Year
  Sex: Male

DRUGS (11)
  1. REMICADE [Suspect]
     Indication: RHEUMATOID ARTHRITIS
     Route: 042
  2. PREDNISOLONE [Concomitant]
  3. CELECOXIB [Concomitant]
  4. ACETAMINOPHEN W/ CODEINE [Concomitant]
  5. ACETAMINOPHEN W/ CODEINE [Concomitant]
  6. CALCIUM [Concomitant]
  7. SINTROM [Concomitant]
  8. METHOTREXATE [Concomitant]
  9. COVERSYL [Concomitant]
  10. MINITRAN [Concomitant]
  11. NOBITEN [Concomitant]

REACTIONS (1)
  - AORTIC ANEURYSM REPAIR [None]
